FAERS Safety Report 4773701-3 (Version None)
Quarter: 2005Q3

REPORT INFORMATION
  Report Type: 
  Country: None (occurrence: None)
  Receive Date: 20050919
  Receipt Date: 20050913
  Transmission Date: 20060218
  Serious: Yes (Other)
  Sender: FDA-Public Use
  Company Number: GBWYE974613SEP05

PATIENT
  Age: 30 Year
  Sex: Male

DRUGS (1)
  1. EFEXOR XL [Suspect]
     Indication: DEPRESSION
     Dosage: 150 MG DAILY
     Route: 048
     Dates: start: 20050713, end: 20050820

REACTIONS (10)
  - ABNORMAL DREAMS [None]
  - CONSTIPATION [None]
  - DYSTONIA [None]
  - HYPERHIDROSIS [None]
  - NAUSEA [None]
  - TETANY [None]
  - TINNITUS [None]
  - URINE ANALYSIS ABNORMAL [None]
  - VERTIGO [None]
  - YAWNING [None]
